FAERS Safety Report 8379408-8 (Version None)
Quarter: 2012Q2

REPORT INFORMATION
  Report Type: 
  Country: None (occurrence: None)
  Receive Date: 20120523
  Receipt Date: 20120514
  Transmission Date: 20120825
  Serious: Yes (Hospitalization, Other)
  Sender: FDA-Public Use
  Company Number: US-ASTRAZENECA-2012SE15422

PATIENT
  Age: 69 Year
  Sex: Female

DRUGS (5)
  1. TOPROL-XL [Suspect]
     Route: 048
  2. METOPROLOL [Suspect]
     Route: 065
  3. CRESTOR [Suspect]
     Route: 048
  4. LASIX [Concomitant]
  5. TOPROL-XL [Suspect]
     Route: 048

REACTIONS (13)
  - ADVERSE DRUG REACTION [None]
  - THERAPEUTIC RESPONSE UNEXPECTED [None]
  - MALAISE [None]
  - DEHYDRATION [None]
  - BLOOD POTASSIUM INCREASED [None]
  - DIABETES MELLITUS INADEQUATE CONTROL [None]
  - THROMBOSIS [None]
  - HYPERHIDROSIS [None]
  - HEART RATE IRREGULAR [None]
  - BLOOD ELECTROLYTES ABNORMAL [None]
  - ATRIAL FIBRILLATION [None]
  - HYPERSOMNIA [None]
  - HYPOTENSION [None]
